FAERS Safety Report 6367431-4 (Version None)
Quarter: 2009Q3

REPORT INFORMATION
  Report Type: 
  Country: None (occurrence: None)
  Receive Date: 20090921
  Receipt Date: 20090915
  Transmission Date: 20100115
  Serious: Yes (Hospitalization)
  Sender: FDA-Public Use
  Company Number: A0808115A

PATIENT
  Sex: Female
  Weight: 73 kg

DRUGS (3)
  1. SERETIDE [Suspect]
     Indication: LUNG DISORDER
     Dosage: 2PUFF PER DAY
     Route: 055
  2. CAPOTEN [Concomitant]
     Dosage: 1TAB PER DAY
     Dates: start: 20090818
  3. VIAGRA [Concomitant]
     Dosage: 1TAB THREE TIMES PER DAY

REACTIONS (1)
  - ADVERSE EVENT [None]
